FAERS Safety Report 13651490 (Version 1)
Quarter: 2017Q2

REPORT INFORMATION
  Report Type: Spontaneous
  Country: TR (occurrence: TR)
  Receive Date: 20170614
  Receipt Date: 20170614
  Transmission Date: 20170830
  Serious: Yes (Life-Threatening, Hospitalization, Other)
  Sender: FDA-Public Use
  Company Number: TR-FTV20170602-01

PATIENT
  Age: 83 Year
  Sex: Female

DRUGS (2)
  1. FACTIVE [Suspect]
     Active Substance: GEMIFLOXACIN MESYLATE
     Indication: COUGH
     Route: 048
     Dates: start: 20170531, end: 20170531
  2. DEMAX [Concomitant]
     Indication: DEMENTIA ALZHEIMER^S TYPE
     Dates: start: 20170531

REACTIONS (10)
  - Muscle spasms [Recovered/Resolved]
  - Tongue oedema [Recovered/Resolved]
  - Contusion [Recovered/Resolved]
  - Pruritus [Recovered/Resolved]
  - Blood pressure decreased [Recovered/Resolved]
  - Off label use [Recovered/Resolved]
  - Loss of consciousness [Recovered/Resolved]
  - Pyrexia [Recovered/Resolved]
  - Erythema [Recovered/Resolved]
  - Chills [Recovered/Resolved]

NARRATIVE: CASE EVENT DATE: 20170531
